FAERS Safety Report 9380808 (Version 2)
Quarter: 2013Q4

REPORT INFORMATION
  Report Type: Spontaneous
  Country: US (occurrence: US)
  Receive Date: 20130702
  Receipt Date: 20131218
  Transmission Date: 20140711
  Serious: Yes (Hospitalization)
  Sender: FDA-Public Use
  Company Number: US-B.I. PHARMACEUTICALS,INC./RIDGEFIELD-2013-BI-18722BP

PATIENT
  Age: 76 Year
  Sex: Male
  Weight: 113.4 kg

DRUGS (8)
  1. PRADAXA [Suspect]
     Indication: ATRIAL FIBRILLATION
     Dosage: 150 MG
     Route: 048
     Dates: start: 20111216, end: 20111221
  2. ASPIRIN [Concomitant]
     Dosage: 81 MG
     Route: 048
  3. FUROSEMIDE [Concomitant]
     Dosage: 160 MG
     Route: 048
  4. INSULIN [Concomitant]
     Dosage: 45 U
  5. LISINOPRIL [Concomitant]
     Dosage: 5 MG
     Route: 048
  6. LORAZEPAM [Concomitant]
     Route: 048
  7. METOPROLOL [Concomitant]
     Dosage: 100 MG
     Route: 048
  8. PREDNISONE [Concomitant]
     Dosage: 30 MG
     Route: 048

REACTIONS (2)
  - Upper gastrointestinal haemorrhage [Unknown]
  - Haemorrhagic anaemia [Unknown]
